FAERS Safety Report 19698618 (Version 1)
Quarter: 2021Q3

REPORT INFORMATION
  Report Type: Spontaneous
  Country: GB (occurrence: GB)
  Receive Date: 20210813
  Receipt Date: 20210813
  Transmission Date: 20211014
  Serious: Yes (Other)
  Sender: FDA-Public Use
  Company Number: GB-ALKEM LABORATORIES LIMITED-GB-ALKEM-2021-04230

PATIENT
  Age: 52 Year
  Sex: Female
  Weight: 63 kg

DRUGS (8)
  1. PREGABALIN. [Suspect]
     Active Substance: PREGABALIN
     Indication: ILL-DEFINED DISORDER
     Dosage: UNK
     Route: 065
     Dates: start: 20210616
  2. FEXOFENADINE [Concomitant]
     Active Substance: FEXOFENADINE HYDROCHLORIDE
     Indication: ILL-DEFINED DISORDER
     Dosage: TAKE ONE DAILY FOR ITCHING
     Route: 065
     Dates: start: 20210604
  3. HYLO?TEAR [Concomitant]
     Indication: ILL-DEFINED DISORDER
     Dosage: APPLY 1 DROP BE TDS FOR 3/12
     Route: 065
     Dates: start: 20201021
  4. LANSOPRAZOLE. [Concomitant]
     Active Substance: LANSOPRAZOLE
     Indication: ILL-DEFINED DISORDER
     Dosage: TAKE ONE A DAY WHILST ON NAPROXEN
     Route: 065
     Dates: start: 20210616
  5. DORZOLAMIDE HYDROCHLORIDE. [Concomitant]
     Active Substance: DORZOLAMIDE HYDROCHLORIDE
     Indication: ILL-DEFINED DISORDER
     Dosage: APPLY 1 DROP TO LE BD FOR 3 MONTHS
     Route: 065
     Dates: start: 20201027
  6. PROCHLORPERAZINE. [Concomitant]
     Active Substance: PROCHLORPERAZINE
     Indication: ILL-DEFINED DISORDER
     Dosage: ONE TDS
     Route: 065
     Dates: start: 20210419, end: 20210420
  7. COCODAMOL [Concomitant]
     Active Substance: ACETAMINOPHEN\CODEINE PHOSPHATE
     Indication: ILL-DEFINED DISORDER
     Dosage: TAKE ONE UP TO FOUR TIMES A DAY
     Route: 065
     Dates: start: 20210419, end: 20210420
  8. NAPROXEN. [Concomitant]
     Active Substance: NAPROXEN
     Indication: ILL-DEFINED DISORDER
     Dosage: TAKE ONE 3 TIMES/DAY FOR PAIN TAKE WITH FOOD
     Route: 065
     Dates: start: 20210616

REACTIONS (1)
  - Petechiae [Recovered/Resolved]

NARRATIVE: CASE EVENT DATE: 20210616
